FAERS Safety Report 5716353-8 (Version None)
Quarter: 2008Q2

REPORT INFORMATION
  Report Type: 
  Country: None (occurrence: None)
  Receive Date: 20080424
  Receipt Date: 20080423
  Transmission Date: 20081010
  Serious: Yes (Other)
  Sender: FDA-Public Use
  Company Number: AT-BRISTOL-MYERS SQUIBB COMPANY-14161590

PATIENT
  Age: 68 Year
  Sex: Male

DRUGS (3)
  1. TRITTICO AC TABS [Suspect]
     Indication: DEPRESSION POSTOPERATIVE
     Dosage: TABLET RETARD
     Route: 048
     Dates: start: 20080306
  2. TRITTICO AC TABS [Suspect]
     Indication: SLEEP DISORDER
     Dosage: TABLET RETARD
     Route: 048
     Dates: start: 20080306
  3. TRITTICO AC TABS [Suspect]
     Indication: PROCEDURAL PAIN
     Dosage: TABLET RETARD
     Route: 048
     Dates: start: 20080306

REACTIONS (1)
  - EJACULATION DISORDER [None]
